FAERS Safety Report 16848139 (Version 1)
Quarter: 2019Q3

REPORT INFORMATION
  Report Type: Spontaneous
  Country: GR (occurrence: GR)
  Receive Date: 20190925
  Receipt Date: 20190925
  Transmission Date: 20191005
  Serious: Yes (Other)
  Sender: FDA-Public Use
  Company Number: GR-AMGEN-GRCSP2019156475

PATIENT
  Sex: Female

DRUGS (5)
  1. ADRIBLASTINA [Concomitant]
     Active Substance: DOXORUBICIN HYDROCHLORIDE
     Dosage: UNK
     Route: 064
  2. DEXAMETHASONE. [Concomitant]
     Active Substance: DEXAMETHASONE
     Dosage: UNK
     Route: 064
  3. FILGRASTIM [Suspect]
     Active Substance: FILGRASTIM
     Indication: EXPOSURE DURING PREGNANCY
     Dosage: UNK
     Route: 064
  4. VINCRISTINE [Concomitant]
     Active Substance: VINCRISTINE
     Dosage: UNK
     Route: 064
  5. ALLOPURINOL. [Concomitant]
     Active Substance: ALLOPURINOL
     Dosage: UNK
     Route: 064

REACTIONS (4)
  - Premature baby [Unknown]
  - Neonatal respiratory distress [Recovered/Resolved]
  - Low birth weight baby [Unknown]
  - Cardiac failure [Unknown]
